FAERS Safety Report 14642056 (Version 1)
Quarter: 2018Q1

REPORT INFORMATION
  Report Type: Spontaneous
  Country: US (occurrence: US)
  Receive Date: 20180315
  Receipt Date: 20180315
  Transmission Date: 20180509
  Serious: No
  Sender: FDA-Public Use
  Company Number: None

PATIENT
  Sex: Male

DRUGS (3)
  1. FOCALIN 10 MG ONCE A DAY [Concomitant]
  2. EVEKEO [Suspect]
     Active Substance: AMPHETAMINE SULFATE
  3. FOCALIN 5 MG 1 DOES AT 7AM AND 1 AFTER SCHOOL [Concomitant]

REACTIONS (2)
  - Aggression [None]
  - Crying [None]
